FAERS Safety Report 21929667 (Version 1)
Quarter: 2023Q1

REPORT INFORMATION
  Report Type: Report from Study
  Country: US (occurrence: US)
  Receive Date: 20230131
  Receipt Date: 20230131
  Transmission Date: 20230417
  Serious: Yes (Life-Threatening)
  Sender: FDA-Public Use
  Company Number: US-ABBVIE-4284557

PATIENT
  Age: 60 Year
  Sex: Male
  Weight: 93.9 kg

DRUGS (7)
  1. IBRUTINIB [Suspect]
     Active Substance: IBRUTINIB
     Indication: Diffuse large B-cell lymphoma
     Dosage: DAYS 1-7 OF EACH CYCLE, CYCLE = 21 DAYS
     Route: 048
     Dates: start: 20220624
  2. DOXORUBICIN HYDROCHLORIDE [Concomitant]
     Active Substance: DOXORUBICIN HYDROCHLORIDE
     Indication: Diffuse large B-cell lymphoma
     Dosage: DOSAGE: 10 MG/M2 IV OVER 24 HOURS ON DAYS 1-4
     Route: 042
     Dates: start: 20220624
  3. VINCRISTINE SULFATE [Concomitant]
     Active Substance: VINCRISTINE SULFATE
     Indication: Diffuse large B-cell lymphoma
     Dosage: DOSAGE: 0.4 MG/M2 IV OVER 24 HOURS ON DAYS 1-4
     Route: 042
     Dates: start: 20220624
  4. PREDNISONE [Concomitant]
     Active Substance: PREDNISONE
     Indication: Diffuse large B-cell lymphoma
     Dosage: DOSAGE: 60 MG/M2 DAYS 1-5
     Route: 048
     Dates: start: 20220624
  5. CYCLOPHOSPHAMIDE [Concomitant]
     Active Substance: CYCLOPHOSPHAMIDE
     Indication: Diffuse large B-cell lymphoma
     Dosage: DOSAGE: 750 MG/M2 750 MG/M2 OR 375 MG/M2 IV OVER 1 HOUR ON DAY 5
     Route: 042
     Dates: start: 20220624
  6. RITUXIMAB [Concomitant]
     Active Substance: RITUXIMAB
     Indication: Diffuse large B-cell lymphoma
     Dosage: DOSAGE: 375 MG/M2 ON DAY 1
     Route: 042
     Dates: start: 20220624
  7. ETOPOSIDE [Concomitant]
     Active Substance: ETOPOSIDE
     Indication: Diffuse large B-cell lymphoma
     Dosage: DOSAGE: 50 MG/M2 IV OVER 24 HOURS ON DAYS 1-4
     Route: 042
     Dates: start: 20220624

REACTIONS (1)
  - Lymphocyte count decreased [Recovered/Resolved]

NARRATIVE: CASE EVENT DATE: 20220630
